FAERS Safety Report 5536191-9 (Version None)
Quarter: 2007Q4

REPORT INFORMATION
  Report Type: 
  Country: None (occurrence: None)
  Receive Date: 20071206
  Receipt Date: 20071127
  Transmission Date: 20080405
  Serious: Yes (Other)
  Sender: FDA-Public Use
  Company Number: US-PFIZER INC-2005156170

PATIENT
  Sex: Male
  Weight: 137 kg

DRUGS (18)
  1. NEURONTIN [Suspect]
     Indication: DIABETIC NEUROPATHY
  2. LYRICA [Suspect]
     Indication: NEUROPATHY
     Route: 048
  3. LYRICA [Suspect]
     Indication: DIABETIC NEUROPATHY
  4. ALBUTEROL [Concomitant]
     Route: 055
  5. SEREVENT [Concomitant]
     Route: 055
  6. VENTOLIN [Concomitant]
     Route: 055
  7. TRICOR [Concomitant]
     Route: 065
  8. LASIX [Concomitant]
     Route: 065
  9. LOPRESSOR [Concomitant]
     Route: 065
  10. LIPITOR [Concomitant]
     Route: 065
  11. ACCUPRIL [Concomitant]
     Route: 065
  12. TEVETEN [Concomitant]
     Route: 065
  13. AMARYL [Concomitant]
     Route: 065
  14. ACTOS [Concomitant]
     Route: 065
  15. GLUCOPHAGE [Concomitant]
     Route: 065
  16. OXYCONTIN [Concomitant]
     Route: 065
  17. LORCET [Concomitant]
     Route: 065
  18. LANTUS [Concomitant]

REACTIONS (6)
  - CORONARY ARTERIAL STENT INSERTION [None]
  - DRUG INEFFECTIVE [None]
  - MUSCLE SPASMS [None]
  - MYOCARDIAL INFARCTION [None]
  - PAIN [None]
  - PARAESTHESIA [None]
